FAERS Safety Report 23213166 (Version 1)
Quarter: 2023Q4

REPORT INFORMATION
  Report Type: Spontaneous
  Country: IT (occurrence: IT)
  Receive Date: 20231121
  Receipt Date: 20231121
  Transmission Date: 20240110
  Serious: Yes (Other)
  Sender: FDA-Public Use
  Company Number: IT-MINISAL02-938995

PATIENT
  Age: 64 Year
  Sex: Female

DRUGS (2)
  1. LORAZEPAM [Suspect]
     Active Substance: LORAZEPAM
     Indication: Drug abuse
     Dosage: 30 MILLIGRAM, UNK
     Route: 048
     Dates: start: 20230730, end: 20230730
  2. ASPIRIN [Concomitant]
     Active Substance: ASPIRIN
     Indication: Thrombosis prophylaxis
     Dosage: 100 MILLIGRAM
     Route: 048

REACTIONS (3)
  - Disorganised speech [Recovering/Resolving]
  - Drug abuse [Recovering/Resolving]
  - Sopor [Recovering/Resolving]

NARRATIVE: CASE EVENT DATE: 20230730
